FAERS Safety Report 5253334-5 (Version None)
Quarter: 2007Q1

REPORT INFORMATION
  Report Type: 
  Country: None (occurrence: None)
  Receive Date: 20070301
  Receipt Date: 20070220
  Transmission Date: 20070707
  Serious: Yes (Other)
  Sender: FDA-Public Use
  Company Number: HQWYE208220FEB07

PATIENT

DRUGS (1)
  1. ANCARON [Suspect]
     Dosage: 100 MG TABLET, DOSE AND FREQUENCY UNKNOWN
     Route: 048

REACTIONS (1)
  - QUADRIPLEGIA [None]
